FAERS Safety Report 21681865 (Version 1)
Quarter: 2022Q4

REPORT INFORMATION
  Report Type: Spontaneous
  Country: GB (occurrence: GB)
  Receive Date: 20221205
  Receipt Date: 20221205
  Transmission Date: 20230113
  Serious: Yes (Congenital Anomaly)
  Sender: FDA-Public Use
  Company Number: GB-MHRA-MED-202211192233155990-NTRJC

PATIENT
  Age: 1 Year
  Sex: Female

DRUGS (5)
  1. PREGABALIN [Suspect]
     Active Substance: PREGABALIN
     Indication: Product used for unknown indication
     Dosage: 200 MY DAILY. WAS ON A HIGHER DOSES 300MG DAILY AND WAS WEANED TO 50MG DAILY ; ;
  2. PREGABALIN [Suspect]
     Active Substance: PREGABALIN
     Dosage: 200 MY DAILY. WAS ON A HIGHER DOSES 300MG DAILY AND WAS WEANED TO 50MG DAILY ; ;
  3. PREGABALIN [Suspect]
     Active Substance: PREGABALIN
     Dosage: 200 MY DAILY. WAS ON A HIGHER DOSES 300MG DAILY AND WAS WEANED TO 50MG DAILY ; ;
  4. FOLIC ACID [Concomitant]
     Active Substance: FOLIC ACID
     Indication: Product used for unknown indication
     Route: 064
  5. ACETAMINOPHEN [Concomitant]
     Active Substance: ACETAMINOPHEN
     Indication: Product used for unknown indication

REACTIONS (2)
  - Horner^s syndrome [Not Recovered/Not Resolved]
  - Foetal exposure during pregnancy [Unknown]
